FAERS Safety Report 16721169 (Version 2)
Quarter: 2019Q3

REPORT INFORMATION
  Report Type: Report from Study
  Country: DK (occurrence: DK)
  Receive Date: 20190820
  Receipt Date: 20190923
  Transmission Date: 20191005
  Serious: Yes (Death, Hospitalization)
  Sender: FDA-Public Use
  Company Number: DK-ASTRAZENECA-2019SF17777

PATIENT
  Age: 20566 Day
  Sex: Female

DRUGS (3)
  1. BLINDED PLACEBO [Suspect]
     Active Substance: INVESTIGATIONAL PRODUCT
     Indication: ALCOHOLISM
     Dosage: ONCE A WEEK
     Route: 058
     Dates: start: 20180718, end: 20181015
  2. BYDUREON [Suspect]
     Active Substance: EXENATIDE
     Indication: ALCOHOLISM
     Route: 058
     Dates: start: 20180718, end: 20181015
  3. AMLODIPIN [Concomitant]
     Active Substance: AMLODIPINE BESYLATE
     Indication: HYPERTENSION
     Route: 048
     Dates: start: 201809

REACTIONS (2)
  - Death [Fatal]
  - Withdrawal syndrome [Recovered/Resolved]

NARRATIVE: CASE EVENT DATE: 20181022
